FAERS Safety Report 8056003-1 (Version None)
Quarter: 2011Q4

REPORT INFORMATION
  Report Type: 
  Country: None (occurrence: None)
  Receive Date: 20111216
  Receipt Date: 20110214
  Transmission Date: 20120403
  Serious: Yes (Other)
  Sender: FDA-Public Use
  Company Number: 265369USA

PATIENT
  Age: 31 Year
  Sex: Female
  Weight: 61.6892 kg

DRUGS (2)
  1. PARAGARD T 380A [Suspect]
     Indication: CONTRACEPTION
     Dosage: I.U.
     Dates: start: 20100801, end: 20110101
  2. MULTI-VITAMINS [Concomitant]

REACTIONS (3)
  - ABORTION SPONTANEOUS [None]
  - DRUG INEFFECTIVE [None]
  - PREGNANCY WITH CONTRACEPTIVE DEVICE [None]
